FAERS Safety Report 12433510 (Version 2)
Quarter: 2016Q3

REPORT INFORMATION
  Report Type: Spontaneous
  Country: US (occurrence: US)
  Receive Date: 20160603
  Receipt Date: 20160729
  Transmission Date: 20161109
  Serious: Yes (Hospitalization, Other)
  Sender: FDA-Public Use
  Company Number: US-SA-2016SA104109

PATIENT
  Age: 77 Year
  Sex: Female
  Weight: 85.28 kg

DRUGS (2)
  1. LANTUS SOLOSTAR [Suspect]
     Active Substance: INSULIN GLARGINE
     Indication: TYPE 2 DIABETES MELLITUS
     Dosage: DOSE:20 UNIT(S)
     Route: 065
     Dates: start: 2008
  2. SOLOSTAR [Concomitant]
     Active Substance: DEVICE
     Indication: TYPE 2 DIABETES MELLITUS
     Dates: start: 2008

REACTIONS (5)
  - Wrong technique in product usage process [Unknown]
  - Product use issue [Unknown]
  - Visual impairment [Unknown]
  - Cataract [Unknown]
  - Hospitalisation [Unknown]

NARRATIVE: CASE EVENT DATE: 2008
